FAERS Safety Report 8463907 (Version 2)
Quarter: 2012Q4

REPORT INFORMATION
  Report Type: 
  Country: AR (occurrence: AR)
  Receive Date: 20120316
  Receipt Date: 20121114
  Transmission Date: 20130627
  Serious: Yes (Death, Other)
  Sender: FDA-Public Use
  Company Number: PHHY2012AR022777

PATIENT
  Age: 66 Year
  Sex: Male

DRUGS (1)
  1. ONBREZ [Suspect]
     Dosage: 1 DF, QD

REACTIONS (4)
  - Cardiopulmonary failure [Fatal]
  - Malignant neoplasm progression [Fatal]
  - Immunodeficiency [Recovering/Resolving]
  - Dyspnoea [Recovering/Resolving]
